FAERS Safety Report 10606327 (Version 1)
Quarter: 2014Q4

REPORT INFORMATION
  Report Type: Spontaneous
  Country: US (occurrence: US)
  Receive Date: 20141125
  Receipt Date: 20141125
  Transmission Date: 20150529
  Serious: No
  Sender: FDA-Public Use
  Company Number: US-AMGEN-USASP2014090750

PATIENT
  Age: 36 Year
  Sex: Male

DRUGS (1)
  1. ENBREL [Suspect]
     Active Substance: ETANERCEPT
     Indication: RHEUMATOID ARTHRITIS
     Dosage: UNK
     Route: 065
     Dates: start: 20110530

REACTIONS (4)
  - Fall [Not Recovered/Not Resolved]
  - Neck injury [Not Recovered/Not Resolved]
  - Mobility decreased [Not Recovered/Not Resolved]
  - Pain [Not Recovered/Not Resolved]

NARRATIVE: CASE EVENT DATE: 20141118
